FAERS Safety Report 13104646 (Version 2)
Quarter: 2017Q3

REPORT INFORMATION
  Report Type: Spontaneous
  Country: US (occurrence: US)
  Receive Date: 20170111
  Receipt Date: 20170808
  Transmission Date: 20171127
  Serious: No
  Sender: FDA-Public Use
  Company Number: US-ASTRAZENECA-2017SE01712

PATIENT
  Sex: Female
  Weight: 55.3 kg

DRUGS (1)
  1. SYMBICORT [Suspect]
     Active Substance: BUDESONIDE\FORMOTEROL FUMARATE DIHYDRATE
     Indication: CHRONIC OBSTRUCTIVE PULMONARY DISEASE
     Dosage: 160/4.5 UG, 1 PUFF TWICE DAILY
     Route: 055
     Dates: start: 201410

REACTIONS (5)
  - Device use error [Unknown]
  - Device malfunction [Unknown]
  - Drug dose omission [Unknown]
  - Dysgeusia [Unknown]
  - Off label use [Unknown]
